FAERS Safety Report 8995150 (Version 4)
Quarter: 2013Q3

REPORT INFORMATION
  Report Type: Spontaneous
  Country: US (occurrence: US)
  Receive Date: 20130102
  Receipt Date: 20130906
  Transmission Date: 20140515
  Serious: Yes (Hospitalization, Other)
  Sender: FDA-Public Use
  Company Number: US-009507513-1203USA01338

PATIENT
  Sex: Female

DRUGS (6)
  1. FOSAMAX [Suspect]
     Indication: OSTEOPOROSIS
     Dosage: 70 MG, QW
     Route: 048
     Dates: start: 20050901, end: 20080202
  2. FOSAMAX [Suspect]
     Indication: OSTEOPOROSIS
     Dosage: 70 MG, QW
     Route: 048
     Dates: start: 20080305
  3. ASCORBIC ACID [Concomitant]
     Dosage: 100 MG, UNK
     Route: 048
     Dates: start: 2001
  4. VITAMIN D (UNSPECIFIED) [Concomitant]
     Dosage: 400 UNK, UNK
     Route: 048
     Dates: start: 2001
  5. VITAMIN E [Concomitant]
     Dosage: 400 UNK, UNK
     Route: 048
     Dates: start: 2001
  6. FOLIC ACID [Concomitant]
     Dosage: UNK
     Route: 048
     Dates: start: 2001

REACTIONS (42)
  - Femur fracture [Unknown]
  - Intramedullary rod insertion [Unknown]
  - Humerus fracture [Unknown]
  - Leukoencephalopathy [Unknown]
  - Pneumonia [Unknown]
  - Aortic valve replacement [Unknown]
  - Pleural effusion [Unknown]
  - Hypoacusis [Unknown]
  - Ventricular extrasystoles [Unknown]
  - Sinus tachycardia [Unknown]
  - Cardiac murmur [Unknown]
  - Vitamin D deficiency [Unknown]
  - Endodontic procedure [Unknown]
  - Tooth extraction [Unknown]
  - Low turnover osteopathy [Unknown]
  - Tooth disorder [Unknown]
  - Cardiac disorder [Unknown]
  - Fractured sacrum [Unknown]
  - Fractured coccyx [Unknown]
  - Aortic arteriosclerosis [Unknown]
  - Hiatus hernia [Unknown]
  - Diverticulum intestinal [Unknown]
  - Spinal compression fracture [Unknown]
  - Spinal compression fracture [Unknown]
  - Spondylolisthesis [Unknown]
  - Intervertebral disc degeneration [Unknown]
  - Arthropathy [Unknown]
  - Dementia Alzheimer^s type [Unknown]
  - Upper limb fracture [Unknown]
  - Elbow operation [Unknown]
  - Spinal column stenosis [Unknown]
  - Spinal disorder [Unknown]
  - Renal cyst [Unknown]
  - Elbow deformity [Not Recovered/Not Resolved]
  - Spondylitis [Unknown]
  - Thyroid neoplasm [Unknown]
  - Laceration [Recovered/Resolved]
  - Cerebral small vessel ischaemic disease [Not Recovered/Not Resolved]
  - Vein disorder [Not Recovered/Not Resolved]
  - Hypertension [Not Recovered/Not Resolved]
  - Lacunar infarction [Unknown]
  - Gastrooesophageal reflux disease [Unknown]
